FAERS Safety Report 6288423-X (Version None)
Quarter: 2009Q3

REPORT INFORMATION
  Report Type: 
  Country: None (occurrence: None)
  Receive Date: 20090729
  Receipt Date: 20090721
  Transmission Date: 20100115
  Serious: Yes (Hospitalization)
  Sender: FDA-Public Use
  Company Number: A0798927A

PATIENT
  Age: 58 Year
  Sex: Male

DRUGS (2)
  1. AVANDAMET [Suspect]
     Route: 048
     Dates: start: 20030101
  2. AVANDARYL [Suspect]
     Route: 048
     Dates: start: 19990101

REACTIONS (3)
  - CARDIAC ASSISTANCE DEVICE USER [None]
  - CARDIAC DISORDER [None]
  - CORONARY ARTERY BYPASS [None]
